FAERS Safety Report 9693844 (Version 3)
Quarter: 2013Q4

REPORT INFORMATION
  Report Type: Spontaneous
  Country: JP (occurrence: None)
  Receive Date: 20131114
  Receipt Date: 20131211
  Transmission Date: 20140711
  Serious: Yes (Hospitalization)
  Sender: FDA-Public Use
  Company Number: SYM-2013-12679

PATIENT
  Age: 68 Year
  Sex: Female

DRUGS (11)
  1. 5 FU [Suspect]
     Indication: COLORECTAL CANCER METASTATIC
     Route: 040
     Dates: start: 20130710, end: 20130710
  2. IRINOTECAN [Suspect]
     Indication: COLORECTAL CANCER METASTATIC
     Route: 041
     Dates: start: 20130710, end: 20130710
  3. LEUCOVORIN (FOLINIC ACID) (SOLUTION FOR INFUSION) (FOLINIC ACID) [Suspect]
     Indication: COLORECTAL CANCER METASTATIC
     Route: 041
     Dates: start: 20130710, end: 20130710
  4. AFLIBERCEPT [Suspect]
     Indication: COLORECTAL CANCER METASTATIC
     Route: 041
     Dates: start: 20130710, end: 20130710
  5. HALFDIGOXIN-KY (DIGOXIN) (DIGOXIN) [Concomitant]
  6. FAMOTIDINE (FAMOTIDINE) (FAMOTIDINE) [Concomitant]
  7. PIMENOL (PIRMENOL HYDROCHLORIDE) (PIRMENOL HYDROCHLORIDE)? [Concomitant]
  8. AMLODIN (AMLODIPINE BESILATE) (AMLODIPINE BESILATE)? [Concomitant]
  9. HIRUDOID (MUCOPOLYSACCHARIDE PULYSULFURIC ACID ESTER) (MUCOPOLYSACCHARIDE POLYSULFURIC ACID ESTER)? [Concomitant]
  10. MIYA-BM (CLOSTRIDIUM BUTYRICUM) (CLOSTRIDIUM BUTYRICUM) [Concomitant]
  11. LOPEMIN (LOPERAMIDE HYDROCHLORIDE) (LOPERAMIDE HYDROCHLORIDE)? [Concomitant]

REACTIONS (6)
  - Alanine aminotransferase increased [None]
  - Aspartate aminotransferase increased [None]
  - Blood alkaline phosphatase increased [None]
  - Blood lactate dehydrogenase increased [None]
  - Malignant neoplasm progression [None]
  - Colorectal cancer metastatic [None]
